FAERS Safety Report 8159046-2 (Version None)
Quarter: 2012Q1

REPORT INFORMATION
  Report Type: 
  Country: None (occurrence: None)
  Receive Date: 20120103
  Receipt Date: 20111101
  Transmission Date: 20120608
  Serious: No
  Sender: FDA-Public Use
  Company Number: AE-2011-002976

PATIENT
  Age: 43 Year
  Sex: Female
  Weight: 86.1834 kg

DRUGS (7)
  1. POTASSIUM CHLORIDE [Concomitant]
  2. STOOL SOFTENER (DOCUSATE SODIUM) [Concomitant]
  3. HYDROCHLOROTHIAZIDE [Concomitant]
  4. INCIVEK [Suspect]
     Dosage: 2250 MG (750 MG, 1 IN 8 HR), ORAL
     Route: 048
     Dates: start: 20111028
  5. PEGASYS [Concomitant]
  6. VITAMIN D [Concomitant]
  7. RIBASPHERE [Concomitant]

REACTIONS (8)
  - URTICARIA [None]
  - ARTHRALGIA [None]
  - VAGINAL HAEMORRHAGE [None]
  - DYSPNOEA [None]
  - PALPITATIONS [None]
  - CONSTIPATION [None]
  - BREAST DISCHARGE [None]
  - ABDOMINAL DISTENSION [None]
